FAERS Safety Report 8708192 (Version 6)
Quarter: 2013Q2

REPORT INFORMATION
  Report Type: Report from Study
  Country: JP (occurrence: JP)
  Receive Date: 20120806
  Receipt Date: 20130430
  Transmission Date: 20140414
  Serious: No
  Sender: FDA-Public Use
  Company Number: JP-JNJFOC-20120800174

PATIENT
  Sex: Male
  Weight: 67 kg

DRUGS (9)
  1. DUROTEP MT [Suspect]
     Indication: PAIN
     Route: 062
     Dates: start: 20111219, end: 20121010
  2. CYTOTEC [Concomitant]
     Indication: PAIN
     Route: 048
     Dates: end: 20111219
  3. CYTOTEC [Concomitant]
     Indication: PAIN
     Route: 048
     Dates: start: 20111219
  4. VOLTAREN [Concomitant]
     Indication: PAIN
     Route: 048
     Dates: start: 20111219
  5. MAGMITT [Concomitant]
     Indication: PRODUCT USED FOR UNKNOWN INDICATION
     Route: 048
     Dates: start: 20111219
  6. PURSENNID [Concomitant]
     Indication: PRODUCT USED FOR UNKNOWN INDICATION
     Route: 048
     Dates: start: 20111219
  7. METHYCOBAL [Concomitant]
     Indication: PAIN
     Route: 048
     Dates: start: 20111219
  8. LYRICA [Concomitant]
     Indication: PAIN
     Route: 048
     Dates: start: 20111219
  9. NEXIUM [Concomitant]
     Indication: PROPHYLAXIS
     Route: 048
     Dates: start: 20111219

REACTIONS (2)
  - Wrong technique in drug usage process [Unknown]
  - Drug intolerance [Unknown]
